FAERS Safety Report 7541528-5 (Version None)
Quarter: 2011Q2

REPORT INFORMATION
  Report Type: 
  Country: None (occurrence: None)
  Receive Date: 20110613
  Receipt Date: 20110609
  Transmission Date: 20111010
  Serious: Yes (Death)
  Sender: FDA-Public Use
  Company Number: SE-BRISTOL-MYERS SQUIBB COMPANY-15416282

PATIENT
  Age: 73 Year
  Sex: Female

DRUGS (1)
  1. IXABEPILONE [Suspect]
     Indication: ENDOMETRIAL CANCER
     Route: 042
     Dates: start: 20101124

REACTIONS (1)
  - SUDDEN DEATH [None]
